FAERS Safety Report 19109296 (Version 2)
Quarter: 2021Q2

REPORT INFORMATION
  Report Type: Spontaneous
  Country: CH (occurrence: CH)
  Receive Date: 20210409
  Receipt Date: 20210415
  Transmission Date: 20210717
  Serious: Yes (Hospitalization, Other)
  Sender: FDA-Public Use
  Company Number: CH-JNJFOC-20210412705

PATIENT
  Age: 61 Year
  Sex: Female

DRUGS (17)
  1. CANDESARTAN. [Concomitant]
     Active Substance: CANDESARTAN
  2. CHIROCAINE [Suspect]
     Active Substance: LEVOBUPIVACAINE HYDROCHLORIDE
     Indication: PRODUCT USED FOR UNKNOWN INDICATION
     Dosage: 100 MG, UNK
     Route: 065
     Dates: start: 20201211, end: 202012
  3. BRIDION [Suspect]
     Active Substance: SUGAMMADEX
     Indication: PRODUCT USED FOR UNKNOWN INDICATION
     Dosage: 200 MG, UNK
     Route: 042
     Dates: start: 20201211, end: 202012
  4. TRANEXAMIC ACID. [Concomitant]
     Active Substance: TRANEXAMIC ACID
     Dates: start: 20201211, end: 202012
  5. CEFUROXIME. [Suspect]
     Active Substance: CEFUROXIME
     Indication: PRODUCT USED FOR UNKNOWN INDICATION
     Dosage: 1.5 G, UNK
     Route: 042
     Dates: start: 20201211, end: 202012
  6. DISOPRIVAN [Concomitant]
     Active Substance: PROPOFOL
     Dates: start: 20201211, end: 20201211
  7. NOVALGIN (METAMIZOLE SODIUM) [Concomitant]
     Active Substance: METAMIZOLE SODIUM
     Dates: start: 20201211, end: 202012
  8. PERFALGAN [Suspect]
     Active Substance: ACETAMINOPHEN
     Indication: PRODUCT USED FOR UNKNOWN INDICATION
     Dosage: 1 G, UNK
     Route: 042
     Dates: start: 20201211, end: 202012
  9. FENTANYL. [Concomitant]
     Active Substance: FENTANYL
     Dates: start: 20201211, end: 202012
  10. TORADOL [Concomitant]
     Active Substance: KETOROLAC TROMETHAMINE
     Dates: start: 20201211, end: 202012
  11. NAROPIN [ROPIVACAINE HYDROCHLORIDE] [Concomitant]
     Dates: start: 20201211, end: 202012
  12. XARELTO [Suspect]
     Active Substance: RIVAROXABAN
     Indication: PRODUCT USED FOR UNKNOWN INDICATION
     Dosage: 10 MG, UNK
     Route: 048
     Dates: start: 202012, end: 202012
  13. RAPIDOCAIN [LIDOCAINE HYDROCHLORIDE] [Concomitant]
     Dates: start: 20201211, end: 202012
  14. DAFALGAN [Suspect]
     Active Substance: ACETAMINOPHEN
     Indication: PRODUCT USED FOR UNKNOWN INDICATION
     Dosage: 1 G, UNK
     Route: 048
     Dates: start: 20201211, end: 202012
  15. IRFEN [Suspect]
     Active Substance: IBUPROFEN
     Indication: PRODUCT USED FOR UNKNOWN INDICATION
     Dosage: 400 MG, UNK
     Route: 048
     Dates: start: 202012, end: 202012
  16. CATAPRESAN [CLONIDINE] [Concomitant]
     Active Substance: CLONIDINE
     Dates: start: 20201211, end: 202012
  17. ESMERON [Concomitant]
     Active Substance: ROCURONIUM BROMIDE
     Dates: start: 20201211, end: 20201211

REACTIONS (4)
  - Liver function test abnormal [Recovering/Resolving]
  - Cholestatic liver injury [Recovering/Resolving]
  - Supraventricular tachycardia [Recovered/Resolved]
  - Normochromic normocytic anaemia [Recovered/Resolved]

NARRATIVE: CASE EVENT DATE: 20201217
